FAERS Safety Report 8055329-5 (Version None)
Quarter: 2012Q1

REPORT INFORMATION
  Report Type: 
  Country: None (occurrence: None)
  Receive Date: 20120119
  Receipt Date: 20120109
  Transmission Date: 20120608
  Serious: Yes (Hospitalization, Other)
  Sender: FDA-Public Use
  Company Number: US-BAYER-2011-038769

PATIENT
  Sex: Female
  Weight: 63 kg

DRUGS (3)
  1. YASMIN [Suspect]
     Indication: PRODUCT USED FOR UNKNOWN INDICATION
     Dosage: UNK
     Dates: start: 20040801, end: 20081201
  2. TYLENOL-PFS [Concomitant]
     Indication: PAIN
  3. IBU-PFS (IBUPROFEN) [Concomitant]
     Indication: PAIN

REACTIONS (7)
  - ANHEDONIA [None]
  - CHOLELITHIASIS [None]
  - GALLBLADDER DISORDER [None]
  - ANXIETY [None]
  - GALLBLADDER INJURY [None]
  - INJURY [None]
  - PAIN [None]
